FAERS Safety Report 21435653 (Version 1)
Quarter: 2022Q4

REPORT INFORMATION
  Report Type: Spontaneous
  Country: US (occurrence: US)
  Receive Date: 20221010
  Receipt Date: 20221010
  Transmission Date: 20230112
  Serious: No
  Sender: FDA-Public Use
  Company Number: US-PFIZER INC-202201213443

PATIENT
  Age: 52 Year
  Sex: Male

DRUGS (1)
  1. BOSULIF [Suspect]
     Active Substance: BOSUTINIB MONOHYDRATE
     Dosage: TAKE 1 TABLET ONCE DAILY. TAKE WITH FOOD, SWALLOW WHOLE
     Route: 048
     Dates: start: 202110

REACTIONS (2)
  - Diarrhoea [Not Recovered/Not Resolved]
  - Product administration error [Unknown]
